FAERS Safety Report 4581629-7 (Version None)
Quarter: 2005Q1

REPORT INFORMATION
  Report Type: 
  Country: None (occurrence: None)
  Receive Date: 20050214
  Receipt Date: 20041206
  Transmission Date: 20050727
  Serious: No
  Sender: FDA-Public Use
  Company Number: US-GLAXOSMITHKLINE-A0536529A

PATIENT
  Age: 68 Year
  Sex: Female

DRUGS (5)
  1. LAMICTAL [Suspect]
     Indication: BIPOLAR DISORDER
     Dosage: 100MG THREE TIMES PER DAY
     Route: 048
  2. TRAZODONE [Concomitant]
     Route: 048
  3. NORTRIPTYLINE HCL [Concomitant]
  4. CHLORAZEPATE [Concomitant]
  5. HYDROCHLOROTHIAZIDE [Concomitant]

REACTIONS (1)
  - RASH [None]
